FAERS Safety Report 6497993-8 (Version None)
Quarter: 2009Q4

REPORT INFORMATION
  Report Type: 
  Country: None (occurrence: None)
  Receive Date: 20091215
  Receipt Date: 20091203
  Transmission Date: 20100525
  Serious: Yes (Hospitalization)
  Sender: FDA-Public Use
  Company Number: PHEH2009US16447

PATIENT
  Sex: Female
  Weight: 92.971 kg

DRUGS (6)
  1. EXJADE [Suspect]
     Indication: IRON OVERLOAD
     Dosage: 1500, DAILY
     Route: 048
     Dates: start: 20090904, end: 20091027
  2. EXJADE [Suspect]
     Indication: MYELODYSPLASTIC SYNDROME
  3. SYNTHROID [Concomitant]
     Dosage: UNK
  4. LASIX [Concomitant]
     Dosage: UNK
  5. LANTUS [Concomitant]
     Dosage: UNK
  6. VICODIN [Concomitant]
     Dosage: UNK

REACTIONS (2)
  - BACK DISORDER [None]
  - BACK PAIN [None]
